FAERS Safety Report 5476692-5 (Version None)
Quarter: 2007Q4

REPORT INFORMATION
  Report Type: 
  Country: None (occurrence: None)
  Receive Date: 20071003
  Receipt Date: 20071003
  Transmission Date: 20080405
  Serious: Yes (Hospitalization)
  Sender: FDA-Public Use
  Company Number: None

PATIENT
  Sex: Female

DRUGS (16)
  1. CETUXIMAB [Suspect]
     Indication: PANCREATIC CARCINOMA
     Dosage: 355MG IV
     Route: 042
     Dates: start: 20070924
  2. GEMCITABINE HCL [Suspect]
     Indication: PANCREATIC CARCINOMA
     Dosage: 1420MG IV
     Route: 042
     Dates: start: 20070917
  3. OXALIPLATIN [Suspect]
     Indication: PANCREATIC CARCINOMA
     Dosage: 142MG IV
     Route: 042
     Dates: start: 20070918
  4. NIFEDIPINE [Concomitant]
  5. DUCOSATE [Concomitant]
  6. ENALAPRIL MALEATE [Concomitant]
  7. PERCOCET [Concomitant]
  8. DURAGESIC-100 [Concomitant]
  9. MILK OF MAGNESIA [Concomitant]
  10. COMPAZINE [Concomitant]
  11. ZOFRAN [Concomitant]
  12. SODIUM PHOSPHATES [Concomitant]
  13. ENULA CREAM [Concomitant]
  14. OXYCONTIN [Concomitant]
  15. MARINOL [Concomitant]
  16. PANCREASE [Concomitant]

REACTIONS (1)
  - URINARY TRACT INFECTION [None]
